FAERS Safety Report 15756547 (Version 1)
Quarter: 2018Q4

REPORT INFORMATION
  Report Type: Spontaneous
  Country: US (occurrence: US)
  Receive Date: 20181222
  Receipt Date: 20181222
  Transmission Date: 20190205
  Serious: No
  Sender: FDA-Public Use
  Company Number: None

PATIENT
  Age: 61 Year
  Sex: Female
  Weight: 63 kg

DRUGS (7)
  1. TYLENOL [Concomitant]
     Active Substance: ACETAMINOPHEN
  2. DEXAMETHASONE. [Concomitant]
     Active Substance: DEXAMETHASONE
  3. OXYCODONE [Concomitant]
     Active Substance: OXYCODONE
  4. VITAMIN C [Concomitant]
     Active Substance: ASCORBIC ACID
  5. MONTELUKAST [Concomitant]
     Active Substance: MONTELUKAST SODIUM
  6. VELCADE [Concomitant]
     Active Substance: BORTEZOMIB
  7. OXYCODONE 10MG [Suspect]
     Active Substance: OXYCODONE
     Indication: LIMB INJURY
     Dosage: ?          QUANTITY:1 TABLET(S);?
     Route: 048

REACTIONS (3)
  - Drug ineffective [None]
  - Product quality issue [None]
  - Fatigue [None]

NARRATIVE: CASE EVENT DATE: 20181212
